FAERS Safety Report 5714299-2 (Version None)
Quarter: 2008Q2

REPORT INFORMATION
  Report Type: 
  Country: None (occurrence: None)
  Receive Date: 20080421
  Receipt Date: 20080407
  Transmission Date: 20081010
  Serious: Yes (Other)
  Sender: FDA-Public Use
  Company Number: 2008JP001769

PATIENT
  Age: 76 Year
  Sex: Male

DRUGS (6)
  1. VESICARE [Suspect]
     Dosage: ORAL
     Route: 048
     Dates: start: 20080329, end: 20080331
  2. HARNAL(TAMSULOSIN) ORODISPERSIBLE CR TABLET, UNKNOWN [Suspect]
     Dosage: 0.2 MG,/D, ORAL
     Route: 048
     Dates: start: 20080329, end: 20080331
  3. OLMESARTAN MEDOXOMIL [Concomitant]
  4. ADALAT [Concomitant]
  5. ASPIRIN [Concomitant]
  6. LEVOFLOXACIN [Concomitant]

REACTIONS (1)
  - RHABDOMYOLYSIS [None]
